FAERS Safety Report 8921445 (Version 2)
Quarter: 2013Q2

REPORT INFORMATION
  Report Type: Report from Study
  Country: JP (occurrence: JP)
  Receive Date: 20121121
  Receipt Date: 20130607
  Transmission Date: 20140414
  Serious: Yes (Hospitalization)
  Sender: FDA-Public Use
  Company Number: JP-AMGEN-JPNCT2012074473

PATIENT
  Age: 76 Year
  Sex: Male
  Weight: 67 kg

DRUGS (27)
  1. DARBEPOETIN ALFA [Suspect]
     Indication: NEPHROGENIC ANAEMIA
     Dosage: 30 MUG, QD
     Route: 058
     Dates: start: 20110514, end: 20110514
  2. DARBEPOETIN ALFA [Suspect]
     Dosage: 60 MUG, QD
     Route: 058
     Dates: start: 20110523, end: 20110523
  3. DARBEPOETIN ALFA [Suspect]
     Dosage: 120 MUG, QD
     Route: 058
     Dates: start: 20110606, end: 20110606
  4. DARBEPOETIN ALFA [Suspect]
     Dosage: 60 MUG, QD
     Route: 058
     Dates: start: 20110621, end: 20110621
  5. DARBEPOETIN ALFA [Suspect]
     Dosage: 40 MUG, QD
     Route: 058
     Dates: start: 20110708, end: 20110708
  6. DARBEPOETIN ALFA [Suspect]
     Dosage: 60 MUG, QD
     Route: 058
     Dates: start: 20110722, end: 20110722
  7. DARBEPOETIN ALFA [Suspect]
     Dosage: 60 MUG, QD
     Route: 058
     Dates: start: 20110805, end: 20110805
  8. DARBEPOETIN ALFA [Suspect]
     Dosage: 120 MUG, Q3WK
     Route: 058
     Dates: start: 20110826, end: 20111028
  9. DARBEPOETIN ALFA [Suspect]
     Dosage: 120 MUG, Q2WK
     Route: 058
     Dates: start: 20111118
  10. AVAPRO [Concomitant]
     Dosage: UNK
     Route: 048
  11. NATRIX [Concomitant]
     Dosage: UNK
     Route: 048
  12. AMARYL [Concomitant]
     Indication: DIABETIC NEPHROPATHY
     Dosage: UNK
     Route: 048
  13. AMLODIN [Concomitant]
     Dosage: UNK
     Route: 048
  14. PATYUNA [Concomitant]
     Dosage: UNK
     Route: 048
  15. GLUFAST [Concomitant]
     Indication: DIABETIC NEPHROPATHY
     Dosage: UNK
     Route: 048
  16. ARTIST [Concomitant]
     Dosage: UNK
     Route: 048
  17. LASIX [Concomitant]
     Dosage: UNK
     Route: 048
  18. EQUA [Concomitant]
     Indication: DIABETIC NEPHROPATHY
     Dosage: UNK
     Route: 048
  19. SODIUM BICARBONATE [Concomitant]
     Dosage: UNK
     Route: 048
  20. ALLORIN [Concomitant]
     Dosage: UNK
     Route: 048
  21. FLUITRAN [Concomitant]
     Dosage: UNK
     Route: 048
  22. CARDENALIN [Concomitant]
     Dosage: UNK
     Route: 048
  23. FAMOSTAGINE [Concomitant]
     Dosage: UNK
     Route: 048
  24. RESTAMIN [Concomitant]
     Dosage: UNK
     Route: 065
  25. FEROTYM [Concomitant]
     Dosage: UNK
     Route: 048
  26. PARIET [Concomitant]
     Dosage: UNK
     Route: 048
  27. TAKEPRON [Concomitant]
     Dosage: UNK UNK, UNK
     Route: 048

REACTIONS (3)
  - Gastric cancer [Recovered/Resolved]
  - Gastritis [Recovering/Resolving]
  - Gastric ulcer [Recovered/Resolved]
